FAERS Safety Report 6245572-X (Version None)
Quarter: 2009Q2

REPORT INFORMATION
  Report Type: 
  Country: None (occurrence: None)
  Receive Date: 20090619
  Receipt Date: 20090403
  Transmission Date: 20091009
  Serious: No
  Sender: FDA-Public Use
  Company Number: ALL1-2009-00894

PATIENT
  Age: 19 Year
  Sex: Male

DRUGS (3)
  1. VYVANSE [Suspect]
     Indication: DRUG USE FOR UNKNOWN INDICATION
     Dosage: 60 MG, 1X/DAY:QD, ORAL
     Route: 048
  2. GEODON [Suspect]
     Indication: DRUG USE FOR UNKNOWN INDICATION
     Dosage: 80 MG, 2X/DAY:BID, ORAL
     Route: 048
  3. RESTORIL [Suspect]
     Indication: DRUG USE FOR UNKNOWN INDICATION
     Dosage: 30 MG, 1X/DAY:QD, ORAL
     Route: 048

REACTIONS (6)
  - AFFECT LABILITY [None]
  - DRUG INTERACTION [None]
  - INCREASED APPETITE [None]
  - IRRITABILITY [None]
  - PAIN [None]
  - WEIGHT INCREASED [None]
